FAERS Safety Report 12338940 (Version 4)
Quarter: 2016Q3

REPORT INFORMATION
  Report Type: Spontaneous
  Country: US (occurrence: US)
  Receive Date: 20160505
  Receipt Date: 20160718
  Transmission Date: 20161109
  Serious: Yes (Other)
  Sender: FDA-Public Use
  Company Number: US-PFIZER INC-2016245847

PATIENT
  Age: 83 Year
  Sex: Female
  Weight: 81.63 kg

DRUGS (1)
  1. TOVIAZ [Suspect]
     Active Substance: FESOTERODINE FUMARATE
     Indication: INCONTINENCE
     Dosage: 8 MG, 1X/DAY
     Route: 048
     Dates: start: 20160321, end: 20160322

REACTIONS (6)
  - Red blood cell count increased [Unknown]
  - Drug hypersensitivity [Recovered/Resolved]
  - Blood potassium decreased [Unknown]
  - Paralysis [Recovered/Resolved]
  - Urinary tract infection [Recovered/Resolved]
  - Eosinophil count increased [Recovered/Resolved]

NARRATIVE: CASE EVENT DATE: 201603
